FAERS Safety Report 23801094 (Version 1)
Quarter: 2024Q2

REPORT INFORMATION
  Report Type: Spontaneous
  Country: US (occurrence: US)
  Receive Date: 20240430
  Receipt Date: 20240430
  Transmission Date: 20240715
  Serious: Yes (Other)
  Sender: FDA-Public Use
  Company Number: US-TAKEDA-2024TUS041102

PATIENT

DRUGS (4)
  1. VELAGLUCERASE ALFA [Suspect]
     Active Substance: VELAGLUCERASE ALFA
     Indication: Supplementation therapy
     Dosage: UNK UNK, Q2WEEKS
     Route: 065
  2. VELAGLUCERASE ALFA [Suspect]
     Active Substance: VELAGLUCERASE ALFA
     Indication: Gaucher^s disease
  3. TALIGLUCERASE ALFA [Concomitant]
     Active Substance: TALIGLUCERASE ALFA
  4. ELIGLUSTAT [Concomitant]
     Active Substance: ELIGLUSTAT

REACTIONS (3)
  - Osteonecrosis [Unknown]
  - Neutralising antibodies positive [Unknown]
  - Infusion related reaction [Unknown]
